FAERS Safety Report 20347349 (Version 2)
Quarter: 2022Q2

REPORT INFORMATION
  Report Type: Spontaneous
  Country: US (occurrence: US)
  Receive Date: 20220118
  Receipt Date: 20220413
  Transmission Date: 20220720
  Serious: No
  Sender: FDA-Public Use
  Company Number: US-PFIZER INC-202101547679

PATIENT
  Age: 58 Year
  Sex: Female

DRUGS (6)
  1. IBRANCE [Suspect]
     Active Substance: PALBOCICLIB
     Indication: Breast cancer female
     Dosage: 125 MG, CYCLIC (DAILY X 21 DAYS THEN 7 DAYS OFF)
     Route: 048
     Dates: start: 20211019
  2. CINNAMON [Concomitant]
     Active Substance: CINNAMON
     Dosage: 500 MG
  3. HYDROCODONE BITARTRATE AND ACETAMINOPHEN [Concomitant]
     Active Substance: ACETAMINOPHEN\HYDROCODONE BITARTRATE
     Dosage: UNK
  4. LETROZOLE [Concomitant]
     Active Substance: LETROZOLE
     Dosage: 2.5 MG
  5. PHENERGAN ELIXIR [Concomitant]
     Dosage: 50 MG/ML
  6. NORCO [Concomitant]
     Active Substance: ACETAMINOPHEN\HYDROCODONE BITARTRATE
     Dosage: UNK

REACTIONS (10)
  - Pain in extremity [Unknown]
  - Muscle atrophy [Unknown]
  - Dry eye [Unknown]
  - Pyrexia [Unknown]
  - Respiratory disorder [Unknown]
  - Furuncle [Unknown]
  - Taste disorder [Unknown]
  - Parosmia [Unknown]
  - Skin disorder [Unknown]
  - Pain in extremity [Unknown]
